FAERS Safety Report 5199243-1 (Version None)
Quarter: 2007Q1

REPORT INFORMATION
  Report Type: 
  Country: None (occurrence: None)
  Receive Date: 20070104
  Receipt Date: 20061226
  Transmission Date: 20070707
  Serious: Yes (Death)
  Sender: FDA-Public Use
  Company Number: MX-PFIZER INC-2006156057

PATIENT
  Sex: Female

DRUGS (1)
  1. GENOTROPIN [Suspect]
     Route: 058
     Dates: start: 20060607, end: 20061108

REACTIONS (2)
  - CARDIO-RESPIRATORY ARREST [None]
  - DEATH [None]
